FAERS Safety Report 4325464-3 (Version None)
Quarter: 2004Q1

REPORT INFORMATION
  Report Type: 
  Country: None (occurrence: None)
  Receive Date: 20040325
  Receipt Date: 20040325
  Transmission Date: 20041129
  Serious: Yes (Life-Threatening, Hospitalization)
  Sender: FDA-Public Use
  Company Number: None

PATIENT
  Sex: Female
  Weight: 74 kg

DRUGS (1)
  1. CYPHER CORONARY STENT [Suspect]
     Dates: start: 20040220

REACTIONS (2)
  - MEDICAL DEVICE COMPLICATION [None]
  - THROMBOSIS [None]
